FAERS Safety Report 25745976 (Version 3)
Quarter: 2025Q4

REPORT INFORMATION
  Report Type: Report from Study
  Country: CO (occurrence: CO)
  Receive Date: 20250901
  Receipt Date: 20251215
  Transmission Date: 20260119
  Serious: Yes (Other)
  Sender: TAKEDA
  Company Number: CO-TAKEDA-2025TUS076492

PATIENT
  Age: 28 Year
  Sex: Male
  Weight: 96 kg

DRUGS (1)
  1. VEDOLIZUMAB [Suspect]
     Active Substance: VEDOLIZUMAB
     Indication: Colitis ulcerative
     Dosage: 300 MILLIGRAM, Q4WEEKS
     Dates: start: 20250506

REACTIONS (15)
  - Haematochezia [Unknown]
  - Mucous stools [Unknown]
  - Bladder pain [Unknown]
  - Pallor [Unknown]
  - Localised oedema [Unknown]
  - Weight increased [Unknown]
  - Vertigo [Unknown]
  - Drug effect less than expected [Unknown]
  - Diarrhoea [Recovering/Resolving]
  - Tachycardia [Unknown]
  - Hyperhidrosis [Unknown]
  - Vision blurred [Unknown]
  - Nausea [Unknown]
  - Pyrexia [Recovering/Resolving]
  - Vomiting [Recovering/Resolving]

NARRATIVE: CASE EVENT DATE: 20250818
